FAERS Safety Report 13499809 (Version 3)
Quarter: 2017Q2

REPORT INFORMATION
  Report Type: Spontaneous
  Country: IT (occurrence: IT)
  Receive Date: 20170501
  Receipt Date: 20170519
  Transmission Date: 20170830
  Serious: Yes (Death)
  Sender: FDA-Public Use
  Company Number: IT-PFIZER INC-2017184927

PATIENT
  Age: 47 Year
  Sex: Female

DRUGS (5)
  1. DEXAMETHASONE. [Concomitant]
     Active Substance: DEXAMETHASONE
     Dosage: 8 MG, UNK
     Dates: start: 20161116, end: 20170223
  2. PACLITAXEL. [Suspect]
     Active Substance: PACLITAXEL
     Dosage: 80 MG/M2, WEEKLY
     Route: 042
     Dates: start: 20161116, end: 20170223
  3. AVASTIN [Suspect]
     Active Substance: BEVACIZUMAB
     Dosage: 10 MG/KG, CYCLIC
     Route: 042
     Dates: start: 20161116, end: 20170223
  4. XGEVA [Suspect]
     Active Substance: DENOSUMAB
     Dosage: UNK
  5. CIPROFLOXACIN. [Concomitant]
     Active Substance: CIPROFLOXACIN
     Indication: BREAST CANCER METASTATIC
     Dosage: 1000 MG, UNK
     Dates: start: 20170315, end: 20170322

REACTIONS (5)
  - Haemolytic anaemia [Fatal]
  - Platelet count decreased [Fatal]
  - Abdominal pain [Fatal]
  - Confusional state [Fatal]
  - Thrombotic thrombocytopenic purpura [Fatal]

NARRATIVE: CASE EVENT DATE: 20170329
